FAERS Safety Report 5646958-4 (Version None)
Quarter: 2008Q1

REPORT INFORMATION
  Report Type: 
  Country: None (occurrence: None)
  Receive Date: 20080303
  Receipt Date: 20080212
  Transmission Date: 20080703
  Serious: Yes (Hospitalization, Congenital Anomaly)
  Sender: FDA-Public Use
  Company Number: A0687261A

PATIENT
  Sex: Female

DRUGS (6)
  1. PAXIL [Suspect]
     Indication: ANXIETY
     Dosage: 20MG PER DAY
     Dates: start: 20010701, end: 20020701
  2. SYNTHROID [Concomitant]
     Indication: HYPOTHYROIDISM
     Dates: start: 19990101
  3. SLOW FE [Concomitant]
  4. VITAMIN TAB [Concomitant]
     Indication: PREGNANCY
  5. CALCIUM [Concomitant]
  6. FOLIC ACID [Concomitant]

REACTIONS (15)
  - ATRIAL SEPTAL DEFECT [None]
  - BUNDLE BRANCH BLOCK RIGHT [None]
  - CARDIAC FAILURE CONGESTIVE [None]
  - CARDIAC MURMUR [None]
  - CARDIOVASCULAR DISORDER [None]
  - CHOKING [None]
  - DRUG EXPOSURE DURING PREGNANCY [None]
  - GASTROOESOPHAGEAL REFLUX DISEASE [None]
  - HEART DISEASE CONGENITAL [None]
  - INTERCOSTAL RETRACTION [None]
  - PATENT DUCTUS ARTERIOSUS [None]
  - PULMONARY OEDEMA [None]
  - TACHYCARDIA [None]
  - TACHYPNOEA [None]
  - VENTRICULAR SEPTAL DEFECT [None]
